FAERS Safety Report 26097175 (Version 1)
Quarter: 2025Q4

REPORT INFORMATION
  Report Type: Spontaneous
  Country: US (occurrence: US)
  Receive Date: 20251127
  Receipt Date: 20251127
  Transmission Date: 20260117
  Serious: Yes (Hospitalization)
  Sender: Atnahs Healthcare
  Company Number: US-ATNAHS-2025-PMNV-US001778

PATIENT

DRUGS (1)
  1. NAPROSYN [Suspect]
     Active Substance: NAPROXEN
     Indication: Suicidal ideation
     Dosage: UNK
     Route: 065

REACTIONS (1)
  - Overdose [Unknown]
